FAERS Safety Report 21443566 (Version 1)
Quarter: 2022Q4

REPORT INFORMATION
  Report Type: Spontaneous
  Country: US (occurrence: US)
  Receive Date: 20221012
  Receipt Date: 20221012
  Transmission Date: 20230113
  Serious: No
  Sender: FDA-Public Use
  Company Number: US-drreddys-SPO/USA/22/0155026

PATIENT
  Age: 50 Year
  Sex: Female

DRUGS (2)
  1. ACCUTANE [Suspect]
     Active Substance: ISOTRETINOIN
     Indication: Acne
     Dosage: RMA ISSUE DATE: 04/MAY/2022 03:54:43 PM
  2. ACCUTANE [Suspect]
     Active Substance: ISOTRETINOIN
     Dosage: RMA ISSUE DATE: 15/JUNE/2022 04:07:43 PM, 26/JULY/2022 11:02:46 AM, 24/AUGUST/2022 09:44:43 AM

REACTIONS (2)
  - Gastrointestinal disorder [Unknown]
  - Condition aggravated [Unknown]
